FAERS Safety Report 10525249 (Version 2)
Quarter: 2014Q4

REPORT INFORMATION
  Report Type: Spontaneous
  Country: JP (occurrence: None)
  Receive Date: 20141015
  Receipt Date: 20141124
  Transmission Date: 20150528
  Serious: Yes (Hospitalization)
  Sender: FDA-Public Use
  Company Number: VAL_03477_2014

PATIENT
  Sex: Male

DRUGS (7)
  1. ZOLEDRONIC ACID. [Concomitant]
     Active Substance: ZOLEDRONIC ACID
  2. ESTROGEN [Concomitant]
     Active Substance: ESTRONE\SUS SCROFA OVARY
  3. EDIROL [Suspect]
     Active Substance: ELDECALCITOL
     Indication: PROSTATE CANCER METASTATIC
     Dosage: (DF)
     Route: 048
  4. GESTAGEN PREPARATIONS [Concomitant]
  5. CALCIUM [Concomitant]
     Active Substance: CALCIUM
  6. DENOSUMAB [Concomitant]
     Active Substance: DENOSUMAB
  7. ROCALTROL [Suspect]
     Active Substance: CALCITRIOL
     Indication: PROSTATE CANCER METASTATIC
     Dosage: (DF ORAL)
     Route: 048

REACTIONS (11)
  - Eating disorder [None]
  - Polyuria [None]
  - Osteomyelitis [None]
  - Pain in jaw [None]
  - Decreased appetite [None]
  - Hypercalcaemia [None]
  - Off label use [None]
  - Brain scan abnormal [None]
  - Altered state of consciousness [None]
  - Urinary incontinence [None]
  - Blood pressure increased [None]
